FAERS Safety Report 6815894-X (Version None)
Quarter: 2010Q3

REPORT INFORMATION
  Report Type: 
  Country: None (occurrence: None)
  Receive Date: 20100705
  Receipt Date: 20100623
  Transmission Date: 20110219
  Serious: No
  Sender: FDA-Public Use
  Company Number: US-BIOGENIDEC-2010BI021623

PATIENT
  Age: 40 Year
  Sex: Female

DRUGS (1)
  1. TYSABRI [Suspect]
     Indication: MULTIPLE SCLEROSIS
     Route: 042
     Dates: start: 20070104

REACTIONS (7)
  - ANXIETY [None]
  - FATIGUE [None]
  - INSOMNIA [None]
  - MOBILITY DECREASED [None]
  - MULTIPLE SCLEROSIS [None]
  - PAIN [None]
  - SEDATION [None]
